FAERS Safety Report 9340416 (Version 3)
Quarter: 2015Q1

REPORT INFORMATION
  Report Type: Spontaneous
  Country: US (occurrence: US)
  Receive Date: 20130610
  Receipt Date: 20150323
  Transmission Date: 20150721
  Serious: Yes (Hospitalization)
  Sender: FDA-Public Use
  Company Number: US-BAYER-2013-070529

PATIENT
  Age: 28 Year
  Sex: Female
  Weight: 66 kg

DRUGS (2)
  1. YAZ [Suspect]
     Active Substance: DROSPIRENONE\ETHINYL ESTRADIOL
     Indication: CONTRACEPTION
     Dosage: UNK
     Dates: start: 201104, end: 201106
  2. BEYAZ [Suspect]
     Active Substance: DROSPIRENONE\ETHINYL ESTRADIOL\LEVOMEFOLATE CALCIUM
     Indication: CONTRACEPTION
     Dosage: UNK
     Dates: start: 2011, end: 2011

REACTIONS (6)
  - Post-traumatic stress disorder [None]
  - Transient ischaemic attack [None]
  - Aphasia [None]
  - Pain [None]
  - Hemiparesis [None]
  - Injury [None]

NARRATIVE: CASE EVENT DATE: 201106
